FAERS Safety Report 24715631 (Version 2)
Quarter: 2025Q2

REPORT INFORMATION
  Report Type: Report from Study
  Country: CA (occurrence: CA)
  Receive Date: 20241210
  Receipt Date: 20250430
  Transmission Date: 20250717
  Serious: Yes (Death, Hospitalization, Other)
  Sender: SANDOZ
  Company Number: CA-002147023-NVSC2021CA293350

PATIENT
  Sex: Male
  Weight: 88 kg

DRUGS (2)
  1. PIRFENIDONE [Suspect]
     Active Substance: PIRFENIDONE
     Indication: Idiopathic pulmonary fibrosis
     Route: 048
  2. PIRFENIDONE [Suspect]
     Active Substance: PIRFENIDONE
     Route: 065
     Dates: start: 20210910

REACTIONS (7)
  - Interstitial lung disease [Fatal]
  - Condition aggravated [Fatal]
  - Hospitalisation [Unknown]
  - Restrictive pulmonary disease [Unknown]
  - Lung diffusion test decreased [Unknown]
  - Total lung capacity decreased [Unknown]
  - Rhinorrhoea [Unknown]
